FAERS Safety Report 18813315 (Version 1)
Quarter: 2021Q1

REPORT INFORMATION
  Report Type: Other
  Country: US (occurrence: US)
  Receive Date: 20210131
  Receipt Date: 20210131
  Transmission Date: 20210419
  Serious: Yes (Other)
  Sender: FDA-Public Use
  Company Number: US-ROCHE-2759252

PATIENT
  Sex: Female
  Weight: 68.1 kg

DRUGS (8)
  1. ACTEMRA [Suspect]
     Active Substance: TOCILIZUMAB
     Indication: RHEUMATOID ARTHRITIS
     Dosage: INJECT 162MG SUBCUTANEOUSLY EVERY 2 WEEKS
     Route: 058
  2. HYDROCHLOROTHIAZIDE. [Concomitant]
     Active Substance: HYDROCHLOROTHIAZIDE
  3. ACTEMRA [Suspect]
     Active Substance: TOCILIZUMAB
  4. METHOTREXATE SODIUM. [Concomitant]
     Active Substance: METHOTREXATE SODIUM
  5. FOLIC ACID. [Concomitant]
     Active Substance: FOLIC ACID
     Route: 048
  6. ACTEMRA [Suspect]
     Active Substance: TOCILIZUMAB
  7. XARELTO [Concomitant]
     Active Substance: RIVAROXABAN
     Route: 048
  8. LIPITOR [Concomitant]
     Active Substance: ATORVASTATIN CALCIUM
     Route: 048

REACTIONS (5)
  - Loss of consciousness [Unknown]
  - Pulmonary thrombosis [Unknown]
  - Cerebral thrombosis [Unknown]
  - Aneurysm [Unknown]
  - Dizziness [Unknown]
